FAERS Safety Report 5958860-9 (Version None)
Quarter: 2008Q4

REPORT INFORMATION
  Report Type: 
  Country: None (occurrence: None)
  Receive Date: 20081119
  Receipt Date: 20081107
  Transmission Date: 20090506
  Serious: Yes (Other)
  Sender: FDA-Public Use
  Company Number: US-AMGEN-QUU316599

PATIENT
  Sex: Female

DRUGS (2)
  1. KINERET [Suspect]
     Indication: JUVENILE ARTHRITIS
     Route: 058
     Dates: end: 20081020
  2. METHOTREXATE [Concomitant]
     Route: 048
     Dates: start: 20081015

REACTIONS (2)
  - ANAEMIA [None]
  - DRUG INEFFECTIVE FOR UNAPPROVED INDICATION [None]
